FAERS Safety Report 12784010 (Version 1)
Quarter: 2016Q3

REPORT INFORMATION
  Report Type: Spontaneous
  Country: US (occurrence: US)
  Receive Date: 20160927
  Receipt Date: 20160927
  Transmission Date: 20161109
  Serious: Yes (Other)
  Sender: FDA-Public Use
  Company Number: US-GLAXOSMITHKLINE-US2016139888

PATIENT
  Age: 34 Year
  Sex: Male

DRUGS (3)
  1. LAMICTAL [Suspect]
     Active Substance: LAMOTRIGINE
     Indication: EPILEPSY
     Dosage: 300 MG, BID
     Route: 048
     Dates: start: 1999
  2. TRILEPTAL [Concomitant]
     Active Substance: OXCARBAZEPINE
  3. LYRICA [Concomitant]
     Active Substance: PREGABALIN

REACTIONS (4)
  - Seizure [Unknown]
  - Surgery [Not Recovered/Not Resolved]
  - Medical device implantation [Unknown]
  - Vagal nerve stimulator implantation [Not Recovered/Not Resolved]

NARRATIVE: CASE EVENT DATE: 2005
